FAERS Safety Report 8093870-X (Version None)
Quarter: 2012Q1

REPORT INFORMATION
  Report Type: 
  Country: None (occurrence: None)
  Receive Date: 20120129
  Receipt Date: 20110920
  Transmission Date: 20120608
  Serious: No
  Sender: FDA-Public Use
  Company Number: US-ABBOTT-11P-163-0856976-00

PATIENT
  Sex: Female
  Weight: 68.1 kg

DRUGS (4)
  1. HUMIRA [Suspect]
     Indication: RHEUMATOID ARTHRITIS
     Dates: start: 20081201, end: 20110712
  2. ZOLOFT [Concomitant]
     Indication: DEPRESSION
  3. LEVOXYL [Concomitant]
     Indication: HYPOTHYROIDISM
  4. PLAQUINELL [Concomitant]
     Indication: RHEUMATOID ARTHRITIS

REACTIONS (3)
  - STAPHYLOCOCCAL INFECTION [None]
  - PSORIASIS [None]
  - ALOPECIA [None]
